FAERS Safety Report 9157147 (Version 2)
Quarter: 2013Q2

REPORT INFORMATION
  Report Type: Spontaneous
  Country: US (occurrence: US)
  Receive Date: 20130312
  Receipt Date: 20130405
  Transmission Date: 20140414
  Serious: Yes (Disabling, Other)
  Sender: FDA-Public Use
  Company Number: US-PFIZER INC-2013079848

PATIENT
  Age: 51 Year
  Sex: Female
  Weight: 65.76 kg

DRUGS (6)
  1. REVATIO [Suspect]
     Indication: PULMONARY HYPERTENSION
     Dosage: 20 MG, 3X/DAY
     Route: 048
     Dates: end: 201302
  2. ESCITALOPRAM [Concomitant]
     Indication: DEPRESSION
     Dosage: 10 MG, 1X/DAY
  3. AMLODIPINE [Concomitant]
     Dosage: 5 MG, 1X/DAY
  4. NEURONTIN [Concomitant]
     Dosage: 600 MG, 3X/DAY
  5. SPIRONOLACTONE [Concomitant]
     Dosage: 200 MG, 1X/DAY
  6. DIGOXIN [Concomitant]
     Dosage: 0.25 MG, 1X/DAY

REACTIONS (6)
  - Cardiac failure [Unknown]
  - Dyspnoea [Unknown]
  - Loss of consciousness [Unknown]
  - Pulmonary arterial pressure increased [Unknown]
  - Malaise [Unknown]
  - Activities of daily living impaired [Unknown]
